FAERS Safety Report 6874403-X (Version None)
Quarter: 2010Q3

REPORT INFORMATION
  Report Type: 
  Country: None (occurrence: None)
  Receive Date: 20100723
  Receipt Date: 20090616
  Transmission Date: 20110219
  Serious: No
  Sender: FDA-Public Use
  Company Number: US-PFIZER INC-2009205295

PATIENT
  Sex: Male
  Weight: 104 kg

DRUGS (3)
  1. CHANTIX [Suspect]
     Indication: SMOKING CESSATION THERAPY
     Dosage: 1 MG, 2X/DAY
     Dates: start: 20090401, end: 20090419
  2. ALLEGRA [Concomitant]
     Indication: HYPERSENSITIVITY
     Dosage: UNK
  3. PRILOSEC [Concomitant]
     Indication: GASTRIC DISORDER
     Dosage: UNK

REACTIONS (3)
  - FAMILY STRESS [None]
  - MOOD ALTERED [None]
  - THINKING ABNORMAL [None]
